FAERS Safety Report 7610290-X (Version None)
Quarter: 2011Q3

REPORT INFORMATION
  Report Type: 
  Country: None (occurrence: None)
  Receive Date: 20110713
  Receipt Date: 20110713
  Transmission Date: 20111222
  Serious: Yes (Other)
  Sender: FDA-Public Use
  Company Number: None

PATIENT
  Age: 74 Year
  Sex: Female
  Weight: 71.2147 kg

DRUGS (1)
  1. RECLAST [Suspect]
     Indication: BONE DISORDER

REACTIONS (8)
  - NAUSEA [None]
  - HEADACHE [None]
  - DYSPHAGIA [None]
  - BONE PAIN [None]
  - ERYTHEMA [None]
  - MOVEMENT DISORDER [None]
  - PYREXIA [None]
  - GAIT DISTURBANCE [None]
